FAERS Safety Report 12202381 (Version 2)
Quarter: 2016Q2

REPORT INFORMATION
  Report Type: Spontaneous
  Country: TR (occurrence: TR)
  Receive Date: 20160322
  Receipt Date: 20160519
  Transmission Date: 20160815
  Serious: Yes (Hospitalization, Congenital Anomaly, Other)
  Sender: FDA-Public Use
  Company Number: PHHY2016TR037344

PATIENT
  Age: 5 Day
  Sex: Female

DRUGS (1)
  1. ZOFRAN [Suspect]
     Active Substance: ONDANSETRON HYDROCHLORIDE
     Indication: FOETAL EXPOSURE DURING PREGNANCY
     Dosage: MATERNAL DOSE: 1 DF, QD (ON EMPTY STOMACH)
     Route: 064

REACTIONS (3)
  - Foetal exposure during pregnancy [Unknown]
  - Choanal atresia [Unknown]
  - Developmental delay [Unknown]

NARRATIVE: CASE EVENT DATE: 20151125
